FAERS Safety Report 8908583 (Version 2)
Quarter: 2013Q1

REPORT INFORMATION
  Report Type: Spontaneous
  Country: US (occurrence: US)
  Receive Date: 20121114
  Receipt Date: 20130125
  Transmission Date: 20140127
  Serious: Yes (Other)
  Sender: FDA-Public Use
  Company Number: US-PFIZER INC-2012283572

PATIENT
  Sex: Female

DRUGS (4)
  1. GABAPENTIN [Suspect]
     Indication: PAIN
     Dosage: UNK, EVERY 4 HOURS
     Route: 048
     Dates: start: 2011
  2. GABAPENTIN [Suspect]
     Dosage: 300 MG, 3X/DAY
     Route: 048
     Dates: end: 20121109
  3. GABAPENTIN [Suspect]
     Dosage: UNK
  4. PERCOCET [Concomitant]
     Indication: PAIN
     Dosage: UNK

REACTIONS (12)
  - Aphasia [Unknown]
  - Balance disorder [Unknown]
  - Memory impairment [Unknown]
  - Drug ineffective [Unknown]
  - Drug intolerance [Unknown]
  - Vision blurred [Unknown]
  - Diplopia [Unknown]
  - Insomnia [Unknown]
  - Dysstasia [Unknown]
  - Pollakiuria [Unknown]
  - Sleep disorder [Unknown]
  - Confusional state [Unknown]
